FAERS Safety Report 12456363 (Version 4)
Quarter: 2016Q3

REPORT INFORMATION
  Report Type: Report from Study
  Country: CN (occurrence: CN)
  Receive Date: 20160610
  Receipt Date: 20160818
  Transmission Date: 20161109
  Serious: Yes (Hospitalization)
  Sender: FDA-Public Use
  Company Number: PHHY2016CN079994

PATIENT
  Age: 32 Year
  Sex: Male
  Weight: 73 kg

DRUGS (3)
  1. PREDNISONE. [Concomitant]
     Active Substance: PREDNISONE
     Indication: RENAL TRANSPLANT
     Dosage: 15 MG, UNK
     Route: 065
     Dates: start: 20160603
  2. TACROLIMUS. [Concomitant]
     Active Substance: TACROLIMUS
     Indication: RENAL TRANSPLANT
     Dosage: 5 MG, UNK
     Route: 065
     Dates: start: 20160312
  3. MYFORTIC [Suspect]
     Active Substance: MYCOPHENOLATE SODIUM
     Indication: RENAL TRANSPLANT
     Dosage: 720 MG, QD
     Route: 048
     Dates: start: 20160312

REACTIONS (4)
  - Ureterolithiasis [Recovered/Resolved]
  - Hydronephrosis [Recovering/Resolving]
  - Diarrhoea [Recovering/Resolving]
  - Enteritis [Recovered/Resolved]

NARRATIVE: CASE EVENT DATE: 20160603
